FAERS Safety Report 13010202 (Version 1)
Quarter: 2016Q4

REPORT INFORMATION
  Report Type: Spontaneous
  Country: US (occurrence: US)
  Receive Date: 20161207
  Receipt Date: 20161207
  Transmission Date: 20170207
  Serious: Yes (Hospitalization)
  Sender: FDA-Public Use
  Company Number: None

PATIENT
  Age: 88 Year
  Sex: Male

DRUGS (8)
  1. ZETIA [Concomitant]
     Active Substance: EZETIMIBE
  2. CASODEX [Concomitant]
     Active Substance: BICALUTAMIDE
  3. FLOMAX [Concomitant]
     Active Substance: TAMSULOSIN HYDROCHLORIDE
  4. ASPIRIN. [Concomitant]
     Active Substance: ASPIRIN
  5. ATORVASTATIN [Concomitant]
     Active Substance: ATORVASTATIN
  6. ESBRIET [Suspect]
     Active Substance: PIRFENIDONE
     Indication: IDIOPATHIC INTERSTITIAL PNEUMONIA
     Route: 048
     Dates: start: 20150916
  7. PRESERVISION [Concomitant]
     Active Substance: MINERALS\VITAMINS
  8. ZOMETA [Concomitant]
     Active Substance: ZOLEDRONIC ACID

REACTIONS (1)
  - Pneumonia [None]

NARRATIVE: CASE EVENT DATE: 20161204
